FAERS Safety Report 20485574 (Version 2)
Quarter: 2022Q1

REPORT INFORMATION
  Report Type: Spontaneous
  Country: US (occurrence: US)
  Receive Date: 20220217
  Receipt Date: 20220304
  Transmission Date: 20220423
  Serious: Yes (Other)
  Sender: FDA-Public Use
  Company Number: US-AMGEN-USASP2022022962

PATIENT
  Age: 72 Year
  Sex: Female

DRUGS (1)
  1. PROLIA [Suspect]
     Active Substance: DENOSUMAB
     Indication: Osteoporosis postmenopausal
     Dosage: 60 MILLIGRAM, Q6MO
     Route: 065

REACTIONS (8)
  - Vascular encephalopathy [Unknown]
  - Cerebral amyloid angiopathy [Unknown]
  - Atrial fibrillation [Unknown]
  - Ankle fracture [Recovered/Resolved]
  - Fall [Unknown]
  - Loss of consciousness [Unknown]
  - Osteoarthritis [Unknown]
  - Weight decreased [Unknown]

NARRATIVE: CASE EVENT DATE: 20200728
